FAERS Safety Report 9703606 (Version 2)
Quarter: 2014Q1

REPORT INFORMATION
  Report Type: Spontaneous
  Country: US (occurrence: US)
  Receive Date: 20131122
  Receipt Date: 20140207
  Transmission Date: 20141002
  Serious: Yes (Death, Other)
  Sender: FDA-Public Use
  Company Number: US-PFIZER INC-2013331264

PATIENT
  Age: 73 Year
  Sex: Female

DRUGS (8)
  1. SUTENT [Suspect]
     Indication: RENAL CELL CARCINOMA
     Dosage: 25 MG, DAILY
     Route: 048
     Dates: start: 20130118
  2. SUTENT [Suspect]
     Dosage: 12.5 MG, UNK
     Route: 048
     Dates: start: 20130222
  3. ACETYLSALICYLIC ACID [Concomitant]
     Dosage: UNK
  4. EVISTA [Concomitant]
     Dosage: UNK
  5. LOVASTATIN [Concomitant]
     Dosage: UNK
  6. METOPROLOL TARTRATE [Concomitant]
     Dosage: UNK
  7. OMEPRAZOLE [Concomitant]
     Dosage: UNK
  8. PRAVASTATIN SODIUM [Concomitant]
     Dosage: UNK

REACTIONS (2)
  - Death [Fatal]
  - Thrombocytopenia [Recovered/Resolved]
